FAERS Safety Report 21306011 (Version 1)
Quarter: 2022Q3

REPORT INFORMATION
  Report Type: Report from Study
  Country: BE (occurrence: BE)
  Receive Date: 20220908
  Receipt Date: 20220908
  Transmission Date: 20221027
  Serious: Yes (Death)
  Sender: FDA-Public Use
  Company Number: BE-DECIPHERA PHARMACEUTICALS LLC-2022BE000753

PATIENT
  Sex: Female

DRUGS (1)
  1. RIPRETINIB [Suspect]
     Active Substance: RIPRETINIB
     Indication: Gastrointestinal stromal tumour
     Dosage: UNK
     Dates: start: 20201118, end: 20210301

REACTIONS (1)
  - Malignant neoplasm progression [Fatal]
